FAERS Safety Report 9886263 (Version 2)
Quarter: 2014Q1

REPORT INFORMATION
  Report Type: Spontaneous
  Country: US (occurrence: US)
  Receive Date: 20140210
  Receipt Date: 20140210
  Transmission Date: 20141002
  Serious: No
  Sender: FDA-Public Use
  Company Number: US-PURDUE-USA-2011-0079391

PATIENT
  Sex: Male

DRUGS (1)
  1. DRONABINOL [Suspect]
     Indication: PRODUCT USED FOR UNKNOWN INDICATION
     Dosage: 5 MG, UNK

REACTIONS (3)
  - Nausea [Unknown]
  - Product odour abnormal [Unknown]
  - Product taste abnormal [Unknown]
